FAERS Safety Report 8347802-7 (Version None)
Quarter: 2012Q2

REPORT INFORMATION
  Report Type: 
  Country: None (occurrence: None)
  Receive Date: 20120509
  Receipt Date: 20120503
  Transmission Date: 20120825
  Serious: Yes (Disabling)
  Sender: FDA-Public Use
  Company Number: US-GLAXOSMITHKLINE-A0976274A

PATIENT
  Age: 80 Year
  Sex: Male

DRUGS (2)
  1. REQUIP [Concomitant]
     Dates: start: 20110101, end: 20120501
  2. REQUIP XL [Suspect]
     Indication: PARKINSON'S DISEASE
     Dosage: 16MG PER DAY
     Route: 048
     Dates: start: 20120501

REACTIONS (4)
  - MEDICATION RESIDUE [None]
  - INSOMNIA [None]
  - CONFUSIONAL STATE [None]
  - BALANCE DISORDER [None]
